FAERS Safety Report 17991404 (Version 1)
Quarter: 2020Q3

REPORT INFORMATION
  Report Type: Spontaneous
  Country: US (occurrence: US)
  Receive Date: 20200707
  Receipt Date: 20200707
  Transmission Date: 20201103
  Serious: Yes (Hospitalization, Other)
  Sender: FDA-Public Use
  Company Number: US-SA-2020SA173330

PATIENT

DRUGS (1)
  1. LANTUS SOLOSTAR [Suspect]
     Active Substance: INSULIN GLARGINE
     Indication: TYPE 2 DIABETES MELLITUS
     Dosage: 40 IU, QD
     Route: 065

REACTIONS (6)
  - Herpes zoster [Unknown]
  - Salmonellosis [Unknown]
  - Transient ischaemic attack [Unknown]
  - Unevaluable event [Unknown]
  - Herpes virus infection [Unknown]
  - Renal disorder [Unknown]
